FAERS Safety Report 8155914 (Version 3)
Quarter: 2013Q1

REPORT INFORMATION
  Report Type: Spontaneous
  Country: JP (occurrence: None)
  Receive Date: 20110912
  Receipt Date: 20121220
  Transmission Date: 20140127
  Serious: Yes (Life-Threatening, Hospitalization, Other)
  Sender: FDA-Public Use
  Company Number: SP03948

PATIENT
  Age: 36 Year
  Sex: Female

DRUGS (4)
  1. VISICOL [Suspect]
     Indication: BOWEL PREPARATION
     Dosage: 50 GM, ORAL
     Route: 048
     Dates: start: 20110803, end: 20110803
  2. SENNOSIDE [Concomitant]
  3. POTASSIUM CHLORIDE [Concomitant]
  4. SPIRONOLACTONE [Concomitant]

REACTIONS (10)
  - Hypoaesthesia [None]
  - Tetany [None]
  - Dyslalia [None]
  - Respiratory paralysis [None]
  - Hypocalcaemia [None]
  - Acute phosphate nephropathy [None]
  - Urine output decreased [None]
  - Renal impairment [None]
  - Hyperphosphataemia [None]
  - Dialysis [None]
